FAERS Safety Report 21362246 (Version 4)
Quarter: 2023Q1

REPORT INFORMATION
  Report Type: Report from Study
  Country: US (occurrence: US)
  Receive Date: 20220922
  Receipt Date: 20230316
  Transmission Date: 20230418
  Serious: Yes (Other)
  Sender: FDA-Public Use
  Company Number: US-ABBVIE-4128584

PATIENT
  Age: 70 Year
  Sex: Female
  Weight: 90.718 kg

DRUGS (2)
  1. RINVOQ [Suspect]
     Active Substance: UPADACITINIB
     Indication: Rheumatoid arthritis
     Route: 048
  2. MODERNA COVID-19 VACCINE [Concomitant]
     Active Substance: ELASOMERAN
     Indication: COVID-19 immunisation
     Route: 030

REACTIONS (5)
  - Knee operation [Unknown]
  - Sciatica [Recovering/Resolving]
  - Sinusitis [Recovering/Resolving]
  - Pain [Unknown]
  - Bedridden [Unknown]

NARRATIVE: CASE EVENT DATE: 20200101
